FAERS Safety Report 10549164 (Version 1)
Quarter: 2014Q4

REPORT INFORMATION
  Report Type: Spontaneous
  Country: US (occurrence: None)
  Receive Date: 20141016
  Receipt Date: 20141016
  Transmission Date: 20150529
  Serious: No
  Sender: FDA-Public Use
  Company Number: CABO-14004398

PATIENT
  Age: 57 Year
  Sex: Male
  Weight: 86.8 kg

DRUGS (2)
  1. FLOMAX [Concomitant]
     Active Substance: TAMSULOSIN HYDROCHLORIDE
  2. COMETRIQ [Suspect]
     Active Substance: CABOZANTINIB S-MALATE
     Indication: RENAL CANCER
     Route: 048
     Dates: start: 20140414, end: 2014

REACTIONS (6)
  - Abdominal discomfort [None]
  - Fatigue [None]
  - Vomiting [None]
  - Dehydration [None]
  - Decreased appetite [None]
  - Off label use [None]
